FAERS Safety Report 6637387-5 (Version None)
Quarter: 2010Q1

REPORT INFORMATION
  Report Type: 
  Country: None (occurrence: None)
  Receive Date: 20100311
  Receipt Date: 20100224
  Transmission Date: 20100710
  Serious: Yes (Life-Threatening)
  Sender: FDA-Public Use
  Company Number: 2010AP000387

PATIENT
  Age: 77 Year
  Sex: Male

DRUGS (8)
  1. SOTALOL HCL [Suspect]
     Dosage: 40 MG;PO
     Route: 048
     Dates: start: 20100207, end: 20100207
  2. CARBIMAZOLE (CARBIMAZOLE) [Concomitant]
  3. DIGOXIN [Concomitant]
  4. EPLERENONE (EPLERENONE) [Concomitant]
  5. OMEPRAZOLE [Concomitant]
  6. RAMIPRIL [Concomitant]
  7. TIOTROPIUM BROMIDE (TIOTROPIUM BROMIDE) [Concomitant]
  8. WARFARIN SODIUM [Concomitant]

REACTIONS (4)
  - DYSPNOEA [None]
  - TACHYCARDIA [None]
  - TACHYPNOEA [None]
  - USE OF ACCESSORY RESPIRATORY MUSCLES [None]
